FAERS Safety Report 9643228 (Version 1)
Quarter: 2013Q4

REPORT INFORMATION
  Report Type: Spontaneous
  Country: CA (occurrence: CA)
  Receive Date: 20131024
  Receipt Date: 20131024
  Transmission Date: 20140711
  Serious: Yes (Other)
  Sender: FDA-Public Use
  Company Number: CA-VERTEX PHARMACEUTICALS INC-2013-010557

PATIENT
  Age: 67 Year
  Sex: Male

DRUGS (6)
  1. INCIVEK [Suspect]
     Indication: HEPATITIS C
     Dosage: 750 MG, TID
     Route: 048
  2. PEGASYS [Suspect]
     Indication: HEPATITIS C
     Dosage: 180 ?G, QW
     Route: 058
  3. RIBAVIRIN [Suspect]
     Indication: HEPATITIS C
     Route: 048
  4. LYRICA [Suspect]
     Route: 065
  5. ELAVIL [Concomitant]
  6. TEGRETOL [Concomitant]
     Route: 048

REACTIONS (6)
  - Transient ischaemic attack [Not Recovered/Not Resolved]
  - Headache [Not Recovered/Not Resolved]
  - Visual acuity reduced [Not Recovered/Not Resolved]
  - Gastric disorder [Not Recovered/Not Resolved]
  - Retinopathy [Not Recovered/Not Resolved]
  - Anaemia [Not Recovered/Not Resolved]
